FAERS Safety Report 14423538 (Version 2)
Quarter: 2018Q1

REPORT INFORMATION
  Report Type: Spontaneous
  Country: US (occurrence: US)
  Receive Date: 20180123
  Receipt Date: 20180314
  Transmission Date: 20180509
  Serious: No
  Sender: FDA-Public Use
  Company Number: US-PFIZER INC-2018025980

PATIENT
  Age: 82 Year
  Sex: Female

DRUGS (1)
  1. HALCION [Suspect]
     Active Substance: TRIAZOLAM
     Indication: SLEEP DISORDER
     Dosage: 2.5 MG, UNK
     Dates: start: 19990201

REACTIONS (1)
  - Drug effect incomplete [Recovered/Resolved]
